FAERS Safety Report 9709115 (Version 2)
Quarter: 2013Q4

REPORT INFORMATION
  Report Type: Spontaneous
  Country: US (occurrence: US)
  Receive Date: 20131125
  Receipt Date: 20131210
  Transmission Date: 20140711
  Serious: Yes (Congenital Anomaly)
  Sender: FDA-Public Use
  Company Number: US-MERCK-1311USA010508

PATIENT
  Sex: Male

DRUGS (4)
  1. ISENTRESS [Suspect]
     Dosage: 400 MG, QD
     Route: 064
     Dates: start: 20120720
  2. PREZISTA [Suspect]
     Dosage: 600 MG, QD
     Route: 064
     Dates: start: 20120807
  3. NORVIR [Suspect]
     Dosage: 100 MG, QD
     Route: 064
     Dates: start: 20040206
  4. SELZENTRY [Suspect]
     Dosage: 150 MG, QD
     Route: 064
     Dates: start: 20120720

REACTIONS (3)
  - Kidney enlargement [Unknown]
  - Congenital renal disorder [Unknown]
  - Foetal exposure during pregnancy [Unknown]
